FAERS Safety Report 20631215 (Version 1)
Quarter: 2022Q1

REPORT INFORMATION
  Report Type: Spontaneous
  Country: HR (occurrence: HR)
  Receive Date: 20220324
  Receipt Date: 20220324
  Transmission Date: 20220423
  Serious: Yes (Hospitalization, Other)
  Sender: FDA-Public Use
  Company Number: HR-ABBVIE-22K-216-4328863-00

PATIENT
  Sex: Female

DRUGS (6)
  1. VENETOCLAX [Suspect]
     Active Substance: VENETOCLAX
     Indication: Chronic lymphocytic leukaemia
     Route: 048
     Dates: start: 20220105, end: 20220110
  2. VENETOCLAX [Suspect]
     Active Substance: VENETOCLAX
     Route: 048
     Dates: start: 20220119, end: 20220126
  3. VENETOCLAX [Suspect]
     Active Substance: VENETOCLAX
     Route: 048
     Dates: start: 20220202, end: 20220217
  4. VENETOCLAX [Suspect]
     Active Substance: VENETOCLAX
     Dosage: DOSE INCREASED
     Route: 048
     Dates: start: 20220225, end: 2022
  5. VENETOCLAX [Suspect]
     Active Substance: VENETOCLAX
     Route: 048
     Dates: start: 20220311
  6. OBINUTUZUMAB [Concomitant]
     Active Substance: OBINUTUZUMAB
     Indication: Product used for unknown indication
     Dates: start: 20211215

REACTIONS (4)
  - COVID-19 [Recovered/Resolved]
  - Pneumonia bacterial [Recovered/Resolved]
  - Neutropenia [Unknown]
  - Asymptomatic COVID-19 [Recovered/Resolved]

NARRATIVE: CASE EVENT DATE: 20220110
